FAERS Safety Report 14873736 (Version 1)
Quarter: 2018Q2

REPORT INFORMATION
  Report Type: Spontaneous
  Country: US (occurrence: US)
  Receive Date: 20180424
  Receipt Date: 20180424
  Transmission Date: 20180711
  Serious: Yes (Hospitalization)
  Sender: FDA-Public Use
  Company Number: None

PATIENT
  Age: 66 Year
  Sex: Female
  Weight: 80.74 kg

DRUGS (1)
  1. NAPROXEN. [Suspect]
     Active Substance: NAPROXEN
     Indication: PAIN
     Route: 048
     Dates: start: 20180129, end: 20180220

REACTIONS (4)
  - Hypersensitivity [None]
  - Rash [None]
  - Musculoskeletal pain [None]
  - Urticaria [None]

NARRATIVE: CASE EVENT DATE: 20180220
